FAERS Safety Report 8757794 (Version 2)
Quarter: 2013Q4

REPORT INFORMATION
  Report Type: Spontaneous
  Country: US (occurrence: US)
  Receive Date: 20120828
  Receipt Date: 20131101
  Transmission Date: 20140711
  Serious: No
  Sender: FDA-Public Use
  Company Number: US-009507513-1208USA003217

PATIENT
  Age: 51 Year
  Sex: Female

DRUGS (1)
  1. AFRIN SPRAY [Suspect]
     Indication: NASAL CONGESTION
     Dosage: UNK, UNKNOWN
     Route: 045

REACTIONS (2)
  - Burning sensation [Unknown]
  - Drug ineffective [Unknown]
